FAERS Safety Report 15090668 (Version 3)
Quarter: 2018Q4

REPORT INFORMATION
  Report Type: Spontaneous
  Country: SE (occurrence: SE)
  Receive Date: 20180629
  Receipt Date: 20181109
  Transmission Date: 20190204
  Serious: Yes (Hospitalization, Other)
  Sender: FDA-Public Use
  Company Number: SE-TAKEDA-2018TUS020806

PATIENT
  Age: 23 Year
  Sex: Male
  Weight: 110 kg

DRUGS (4)
  1. ENTYVIO [Suspect]
     Active Substance: VEDOLIZUMAB
     Indication: COLITIS ULCERATIVE
     Dosage: 300 MG, UNK
     Route: 065
     Dates: start: 2015
  2. ASACOL [Suspect]
     Active Substance: MESALAMINE
     Indication: COLITIS ULCERATIVE
     Dosage: 800 MG, UNK
     Route: 065
     Dates: end: 20180613
  3. CREATININE [Concomitant]
     Active Substance: CREATININE
     Indication: SUPPLEMENTATION THERAPY
     Dosage: UNK
  4. WHEY PROTEIN [Concomitant]
     Active Substance: WHEY
     Indication: SUPPLEMENTATION THERAPY
     Dosage: UNK

REACTIONS (6)
  - Blood creatinine increased [Recovered/Resolved]
  - Oedema [Recovered/Resolved]
  - Haematoma [Unknown]
  - Proteinuria [Recovered/Resolved]
  - Weight increased [Unknown]
  - Nephrotic syndrome [Recovering/Resolving]

NARRATIVE: CASE EVENT DATE: 201806
